FAERS Safety Report 4613149-5 (Version None)
Quarter: 2005Q1

REPORT INFORMATION
  Report Type: 
  Country: None (occurrence: None)
  Receive Date: 20050316
  Receipt Date: 20050301
  Transmission Date: 20050727
  Serious: Yes (Death)
  Sender: FDA-Public Use
  Company Number: USA050290262

PATIENT
  Age: 80 Year
  Sex: Female
  Weight: 55 kg

DRUGS (2)
  1. CYMBALTA [Suspect]
     Indication: DEPRESSION
     Dosage: 60 MG
     Dates: start: 20050203
  2. DIGOXIN [Concomitant]

REACTIONS (3)
  - MYOCARDIAL INFARCTION [None]
  - PAIN IN EXTREMITY [None]
  - SUDDEN DEATH [None]
